FAERS Safety Report 13306945 (Version 1)
Quarter: 2017Q1

REPORT INFORMATION
  Report Type: Spontaneous
  Country: US (occurrence: US)
  Receive Date: 20170308
  Receipt Date: 20170308
  Transmission Date: 20170428
  Serious: No
  Sender: FDA-Public Use
  Company Number: US-AKORN PHARMACEUTICALS-2016AKN00566

PATIENT
  Sex: Female

DRUGS (4)
  1. MYORISAN [Suspect]
     Active Substance: ISOTRETINOIN
     Indication: ACNE
     Dosage: 2 CAPSULES ON EVEN DAYS, 1X/DAY
     Route: 048
     Dates: start: 20160226, end: 2016
  2. MYORISAN [Suspect]
     Active Substance: ISOTRETINOIN
     Dosage: 1 CAPSULES EVERY DAY
     Route: 048
     Dates: start: 2016, end: 20160817
  3. MYORISAN [Suspect]
     Active Substance: ISOTRETINOIN
     Dosage: 2 CAPSULES EVERY DAY
     Dates: start: 20160818
  4. MYORISAN [Suspect]
     Active Substance: ISOTRETINOIN
     Dosage: 1 CAPSULE ON ODD DAYS
     Route: 048
     Dates: start: 20160226, end: 2016

REACTIONS (3)
  - Dry skin [Recovering/Resolving]
  - Lip dry [Not Recovered/Not Resolved]
  - Medication error [Unknown]

NARRATIVE: CASE EVENT DATE: 2016
